FAERS Safety Report 7426977-8 (Version None)
Quarter: 2011Q2

REPORT INFORMATION
  Report Type: 
  Country: None (occurrence: None)
  Receive Date: 20110420
  Receipt Date: 20110324
  Transmission Date: 20111010
  Serious: No
  Sender: FDA-Public Use
  Company Number: US-B.I. PHARMACEUTICALS,INC./RIDGEFIELD-2011-BP-09177BP

PATIENT
  Age: 84 Year
  Sex: Male

DRUGS (5)
  1. RAMIPRIL [Concomitant]
     Dosage: 5 MG
     Route: 048
  2. ATENOLOL [Concomitant]
     Indication: ANTICOAGULANT THERAPY
     Dosage: 2.5 MG
     Route: 048
  3. VITAMIN TAB [Concomitant]
     Route: 048
  4. PRADAXA [Suspect]
     Indication: MEMORY IMPAIRMENT
     Dosage: 300 MG
     Route: 048
     Dates: start: 20110201
  5. NAMENDA [Concomitant]
     Dosage: 10 MG
     Route: 048

REACTIONS (1)
  - DIZZINESS [None]
